FAERS Safety Report 8192990-9 (Version None)
Quarter: 2012Q1

REPORT INFORMATION
  Report Type: 
  Country: None (occurrence: None)
  Receive Date: 20120221
  Receipt Date: 20111026
  Transmission Date: 20120608
  Serious: No
  Sender: FDA-Public Use
  Company Number: 1000025000

PATIENT
  Age: 63 Year
  Sex: Female

DRUGS (2)
  1. VIIBRYD [Suspect]
     Indication: DEPRESSION
     Dosage: 10 MG (10 MG, 1 IN 1 D), ORAL
     Route: 048
     Dates: start: 20111001, end: 20111001
  2. XANAX (ALPRAZOLAM) (1 MILLIGRAM) (ALPRAZOLAM) [Concomitant]

REACTIONS (1)
  - CONSTIPATION [None]
